FAERS Safety Report 14120878 (Version 1)
Quarter: 2017Q4

REPORT INFORMATION
  Report Type: Not Available
  Country: HR (occurrence: HR)
  Receive Date: 20171024
  Receipt Date: 20171024
  Transmission Date: 20180321
  Serious: Yes (Other)
  Sender: FDA-Public Use
  Company Number: HR-AKORN-70733

PATIENT
  Age: 61 Year
  Sex: Male
  Weight: 75 kg

DRUGS (1)
  1. COSOPT [Suspect]
     Active Substance: DORZOLAMIDE HYDROCHLORIDE\TIMOLOL MALEATE

REACTIONS (6)
  - Lacrimation increased [Recovered/Resolved]
  - Periorbital oedema [Recovered/Resolved]
  - Conjunctival oedema [Recovered/Resolved]
  - Face oedema [Recovered/Resolved]
  - Ocular hyperaemia [Recovered/Resolved]
  - Conjunctival hyperaemia [Recovered/Resolved]

NARRATIVE: CASE EVENT DATE: 20170827
